FAERS Safety Report 9188339 (Version 2)
Quarter: 2013Q1

REPORT INFORMATION
  Report Type: Spontaneous
  Country: US (occurrence: US)
  Receive Date: 20130325
  Receipt Date: 20130326
  Transmission Date: 20140127
  Serious: Yes (Hospitalization)
  Sender: FDA-Public Use
  Company Number: US-RB-047148-12

PATIENT
  Age: 78 Year
  Sex: Male

DRUGS (4)
  1. MUCINEX D MAXIMUM STRENGTH [Suspect]
     Indication: PRODUCT USED FOR UNKNOWN INDICATION
     Dosage: STARTED  TAKING ON ??/NOV/2012.1 TABLET ON 20-NOV-2012
     Route: 048
  2. MUCINEX D MAXIMUM STRENGTH [Suspect]
  3. MUCINEX DM MAXIMUM STRENGTH (GUAIFENESIN) [Suspect]
     Indication: PRODUCT USED FOR UNKNOWN INDICATION
     Dosage: STARTED  TAKING ON ??/NOV/2012.
     Route: 048
  4. MUCINEX DM MAXIMUM STRENGTH [Suspect]

REACTIONS (4)
  - Heart rate decreased [Unknown]
  - Asthenia [Unknown]
  - Headache [Unknown]
  - Dizziness [Unknown]
